FAERS Safety Report 5695294-9 (Version None)
Quarter: 2008Q2

REPORT INFORMATION
  Report Type: 
  Country: None (occurrence: None)
  Receive Date: 20080404
  Receipt Date: 20080326
  Transmission Date: 20081010
  Serious: Yes (Other)
  Sender: FDA-Public Use
  Company Number: CA-PFIZER INC-2008028203

PATIENT

DRUGS (1)
  1. SUTENT [Suspect]

REACTIONS (1)
  - ATAXIA [None]
